FAERS Safety Report 12207847 (Version 1)
Quarter: 2016Q1

REPORT INFORMATION
  Report Type: Report from Study
  Country: GB (occurrence: GB)
  Receive Date: 20160324
  Receipt Date: 20160324
  Transmission Date: 20160526
  Serious: Yes (Hospitalization, Other)
  Sender: FDA-Public Use
  Company Number: GB-JNJFOC-20160315075

PATIENT
  Age: 45 Year
  Sex: Male
  Weight: 69 kg

DRUGS (6)
  1. CICLOSPORIN [Concomitant]
     Active Substance: CYCLOSPORINE
     Route: 065
     Dates: start: 20090616
  2. AMITRIPTYLINE [Concomitant]
     Active Substance: AMITRIPTYLINE
     Route: 065
     Dates: start: 20101007
  3. STELARA [Suspect]
     Active Substance: USTEKINUMAB
     Indication: PSORIASIS
     Route: 058
     Dates: start: 20100118, end: 20100808
  4. DOVOBET [Concomitant]
     Active Substance: BETAMETHASONE\CALCIPOTRIENE
     Route: 065
     Dates: start: 20090616
  5. OMEPRAZOLE. [Concomitant]
     Active Substance: OMEPRAZOLE
     Route: 065
     Dates: start: 20090616
  6. FUMARIC ACID [Concomitant]
     Active Substance: FUMARIC ACID
     Route: 065
     Dates: start: 20101007

REACTIONS (10)
  - Aggression [Unknown]
  - Depressed mood [Unknown]
  - Erythrodermic psoriasis [Recovered/Resolved]
  - Insomnia [Unknown]
  - Pyrexia [Unknown]
  - Mobility decreased [Unknown]
  - Weight decreased [Unknown]
  - Psoriatic arthropathy [Recovered/Resolved]
  - Suicidal ideation [Unknown]
  - Decreased appetite [Unknown]

NARRATIVE: CASE EVENT DATE: 2010
